FAERS Safety Report 5946235-8 (Version None)
Quarter: 2008Q4

REPORT INFORMATION
  Report Type: 
  Country: None (occurrence: None)
  Receive Date: 20081110
  Receipt Date: 20081028
  Transmission Date: 20090506
  Serious: Yes (Other)
  Sender: FDA-Public Use
  Company Number: US-ROCHE-595005

PATIENT
  Age: 54 Year
  Sex: Male

DRUGS (8)
  1. MYCOPHENOLATE MOFETIL [Suspect]
     Indication: PROPHYLAXIS AGAINST TRANSPLANT REJECTION
     Route: 065
  2. GANCICLOVIR [Suspect]
     Indication: PROPHYLAXIS
     Route: 065
  3. BACTRIM [Suspect]
     Indication: PROPHYLAXIS
     Route: 065
  4. HEPARIN [Suspect]
     Indication: PROPHYLAXIS
     Route: 065
  5. TACROLIMUS [Suspect]
     Indication: PROPHYLAXIS AGAINST TRANSPLANT REJECTION
     Dosage: TARGET TACROLIMUS LEVELS: 10-15 NG/ML FIRST 6 MONTHS, 8-10 NG/ML THEREAFTER
     Route: 065
  6. METHYLPREDNISOLONE 16MG TAB [Suspect]
     Indication: PROPHYLAXIS AGAINST TRANSPLANT REJECTION
     Dosage: 3 DOSES PERIOPERATIVELY
     Route: 065
  7. ALEMTUZUMAB [Suspect]
     Indication: PROPHYLAXIS AGAINST TRANSPLANT REJECTION
     Dosage: 1 DOSE
     Route: 065
  8. NYSTATIN [Concomitant]
     Indication: PROPHYLAXIS

REACTIONS (4)
  - CYTOMEGALOVIRUS COLITIS [None]
  - LIPIDS INCREASED [None]
  - NEUTROPENIA [None]
  - TRANSPLANT REJECTION [None]
